FAERS Safety Report 8987789 (Version 1)
Quarter: 2012Q4

REPORT INFORMATION
  Report Type: 
  Country: US (occurrence: US)
  Receive Date: 20121227
  Receipt Date: 20121227
  Transmission Date: 20130627
  Serious: No
  Sender: FDA-Public Use
  Company Number: US-PFIZER INC-2012326940

PATIENT
  Age: 62 Year
  Sex: Female
  Weight: 72 kg

DRUGS (2)
  1. ADVIL COLD AND SINUS [Suspect]
     Indication: RUNNY NOSE
     Dosage: 200/30 mg, once a day
     Route: 048
     Dates: start: 20121222
  2. ADVIL COLD AND SINUS [Suspect]
     Indication: SINUSITIS

REACTIONS (3)
  - Somnolence [Unknown]
  - Eye disorder [Unknown]
  - Sedation [Unknown]
